FAERS Safety Report 9028413 (Version 3)
Quarter: 2013Q4

REPORT INFORMATION
  Report Type: Spontaneous
  Country: FR (occurrence: FR)
  Receive Date: 20130124
  Receipt Date: 20131003
  Transmission Date: 20140711
  Serious: Yes (Other)
  Sender: FDA-Public Use
  Company Number: FR-UCBSA-076181

PATIENT
  Age: 74 Year
  Sex: Male

DRUGS (4)
  1. NEUPRO [Suspect]
     Indication: PARKINSON^S DISEASE
     Dosage: DAILY DOSE: 10 MG ( (1 PATCH OF 2 MG AND 1 PATCH OF 8MG DAILY)
     Route: 062
  2. STALEVO [Concomitant]
     Dosage: 100 MG /25 MG/ 200 MG
  3. STALEVO [Concomitant]
     Dosage: 75/18,75/200
  4. MODAPAR [Concomitant]
     Dosage: DOSE:100 MG/25 MG  , FORM: TABLETS FOR ORAL SUSPENSION

REACTIONS (2)
  - Angle closure glaucoma [Recovered/Resolved]
  - Cataract nuclear [Unknown]
